FAERS Safety Report 4643722-X (Version None)
Quarter: 2005Q2

REPORT INFORMATION
  Report Type: 
  Country: None (occurrence: None)
  Receive Date: 20050425
  Receipt Date: 20050222
  Transmission Date: 20051028
  Serious: Yes (Disabling)
  Sender: FDA-Public Use
  Company Number: US-BRISTOL-MYERS SQUIBB COMPANY-12871125

PATIENT
  Age: 42 Year
  Sex: Female

DRUGS (11)
  1. CYTOXAN [Suspect]
     Indication: SYSTEMIC LUPUS ERYTHEMATOSUS
     Dosage: ALSO ADMINISTERED ON 15-MAR-2005 I GRAM IV
     Route: 042
     Dates: start: 20050218, end: 20050218
  2. SOLU-MEDROL [Concomitant]
     Indication: PREMEDICATION
     Route: 042
  3. ZOFRAN [Concomitant]
     Indication: PREMEDICATION
  4. PHENERGAN [Concomitant]
     Indication: PREMEDICATION
     Route: 048
  5. OXYCONTIN [Concomitant]
  6. PERCOCET [Concomitant]
  7. FOLIC ACID [Concomitant]
  8. METHOTREXATE [Concomitant]
     Route: 058
  9. NORVASC [Concomitant]
  10. PROZAC [Concomitant]
  11. XANAX [Concomitant]

REACTIONS (2)
  - HEADACHE [None]
  - NAUSEA [None]
